FAERS Safety Report 25444095 (Version 2)
Quarter: 2025Q4

REPORT INFORMATION
  Report Type: Spontaneous
  Country: US (occurrence: None)
  Receive Date: 20250617
  Receipt Date: 20251027
  Transmission Date: 20260117
  Serious: No
  Sender: UCB
  Company Number: US-UCBSA-2025024039

PATIENT

DRUGS (1)
  1. BIMZELX [Suspect]
     Active Substance: BIMEKIZUMAB-BKZX
     Indication: Drug therapy
     Dosage: 320 MILLIGRAM, EV 8 WEEKS

REACTIONS (1)
  - Inappropriate schedule of product administration [Unknown]
